FAERS Safety Report 4951367-7 (Version None)
Quarter: 2006Q1

REPORT INFORMATION
  Report Type: 
  Country: None (occurrence: None)
  Receive Date: 20060317
  Receipt Date: 20060301
  Transmission Date: 20060701
  Serious: Yes (Hospitalization)
  Sender: FDA-Public Use
  Company Number: GBS051018684

PATIENT
  Age: 36 Year
  Sex: Male

DRUGS (4)
  1. SOMATROPIN [Suspect]
     Dosage: SEE IMAGE
  2. SOMATROPIN [Suspect]
     Dosage: SEE IMAGE
  3. TESTOSTERONE [Concomitant]
  4. STANOZOLOL [Concomitant]

REACTIONS (9)
  - DRUG ABUSER [None]
  - DYSPHONIA [None]
  - DYSPNOEA [None]
  - LARYNGOCELE [None]
  - MIDDLE INSOMNIA [None]
  - MUCOSAL DRYNESS [None]
  - NOCTURNAL DYSPNOEA [None]
  - STRIDOR [None]
  - VOCAL CORD DISORDER [None]
